FAERS Safety Report 4409553-0 (Version None)
Quarter: 2004Q3

REPORT INFORMATION
  Report Type: 
  Country: None (occurrence: None)
  Receive Date: 20040723
  Receipt Date: 20040714
  Transmission Date: 20050211
  Serious: Yes (Other)
  Sender: FDA-Public Use
  Company Number: 2004-0007266

PATIENT
  Age: 3 Year
  Sex: Male

DRUGS (3)
  1. HEPSERA [Suspect]
     Indication: HEPATITIS B
     Dosage: SEE IMAGE
     Route: 048
     Dates: start: 20030601, end: 20040401
  2. HEPSERA [Suspect]
     Indication: HEPATITIS B
     Dosage: SEE IMAGE
     Route: 048
     Dates: start: 20040401, end: 20040501
  3. HEPSERA [Suspect]
     Indication: HEPATITIS B
     Dosage: SEE IMAGE
     Route: 048
     Dates: start: 20040501

REACTIONS (2)
  - COORDINATION ABNORMAL [None]
  - MUSCULAR WEAKNESS [None]
